FAERS Safety Report 25968344 (Version 6)
Quarter: 2025Q4

REPORT INFORMATION
  Report Type: Spontaneous
  Country: US (occurrence: US)
  Receive Date: 20251028
  Receipt Date: 20251229
  Transmission Date: 20260117
  Serious: Yes (Other)
  Sender: ASTELLAS
  Company Number: US-ASTELLAS-2025-AER-058994

PATIENT
  Age: 76 Year
  Sex: Male

DRUGS (2)
  1. PADCEV [Suspect]
     Active Substance: ENFORTUMAB VEDOTIN-EJFV
     Indication: Transitional cell carcinoma metastatic
     Dosage: STRENGTH 20 MG
     Route: 065
     Dates: start: 2023
  2. PEMBROLIZUMAB [Suspect]
     Active Substance: PEMBROLIZUMAB
     Indication: Transitional cell carcinoma metastatic
     Route: 065
     Dates: start: 2023

REACTIONS (3)
  - Immune-mediated dermatitis [Unknown]
  - Fungal skin infection [Unknown]
  - Rash macular [Unknown]

NARRATIVE: CASE EVENT DATE: 20230101
